FAERS Safety Report 9723391 (Version 2)
Quarter: 2013Q4

REPORT INFORMATION
  Report Type: Report from Study
  Country: MX (occurrence: MX)
  Receive Date: 20131202
  Receipt Date: 20131202
  Transmission Date: 20140711
  Serious: Yes (Death, Hospitalization)
  Sender: FDA-Public Use
  Company Number: MX-BRISTOL-MYERS SQUIBB COMPANY-16120974

PATIENT
  Age: 56 Year
  Sex: Male
  Weight: 49.5 kg

DRUGS (3)
  1. ERBITUX [Suspect]
     Indication: SQUAMOUS CELL CARCINOMA OF HEAD AND NECK
     Dosage: R1:400MG/M2:14-14SEP11 D1 OF CYCLE 1 ONLY.RG 2:21SEP11-ONG(250MG/M2 WKLY D8+D15).LAST DOSE ON 21SP11
     Route: 042
     Dates: start: 20110914, end: 20110921
  2. CISPLATIN [Suspect]
     Indication: SQUAMOUS CELL CARCINOMA OF HEAD AND NECK
     Dosage: LAST DOSE ON 14SEP2011
     Route: 042
     Dates: start: 20110914, end: 20110914
  3. 5-FLUOROURACIL [Suspect]
     Indication: SQUAMOUS CELL CARCINOMA OF HEAD AND NECK
     Dosage: D1-4.LAST DOSE:17SEP11
     Route: 042
     Dates: start: 20110914, end: 20110917

REACTIONS (4)
  - Septic shock [Fatal]
  - Diarrhoea [Unknown]
  - Neutropenia [Unknown]
  - Hypotension [Not Recovered/Not Resolved]
